FAERS Safety Report 25708350 (Version 1)
Quarter: 2025Q3

REPORT INFORMATION
  Report Type: Spontaneous
  Country: US (occurrence: US)
  Receive Date: 20250821
  Receipt Date: 20250821
  Transmission Date: 20251021
  Serious: Yes (Hospitalization, Other)
  Sender: STRIDES
  Company Number: US-STRIDES PHARMA UK LTD.-2025SP008470

PATIENT
  Age: 57 Year
  Sex: Female

DRUGS (2)
  1. PREDNISONE [Suspect]
     Active Substance: PREDNISONE
     Indication: Immunosuppressant drug therapy
     Route: 048
  2. TACROLIMUS [Suspect]
     Active Substance: TACROLIMUS
     Indication: Immunosuppressant drug therapy
     Route: 065

REACTIONS (7)
  - Cryptococcal fungaemia [Recovering/Resolving]
  - Meningitis cryptococcal [Recovering/Resolving]
  - Pneumonia cryptococcal [Recovering/Resolving]
  - Endophthalmitis [Recovering/Resolving]
  - Eye infection toxoplasmal [Recovering/Resolving]
  - Cytomegalovirus infection [Recovering/Resolving]
  - Off label use [Unknown]
